FAERS Safety Report 9868408 (Version 4)
Quarter: 2014Q2

REPORT INFORMATION
  Report Type: Report from Study
  Country: GB (occurrence: GB)
  Receive Date: 20140204
  Receipt Date: 20140618
  Transmission Date: 20141212
  Serious: Yes (Other)
  Sender: FDA-Public Use
  Company Number: PHFR2014GB001173

PATIENT
  Age: 36 Year
  Sex: Female
  Weight: 60 kg

DRUGS (3)
  1. GILENYA [Suspect]
     Indication: MULTIPLE SCLEROSIS
     Dosage: 0.5 MG, DAILY
     Route: 048
     Dates: start: 20130625
  2. AMITRIPTYLINE [Concomitant]
     Indication: HEADACHE
     Route: 048
  3. FLUOXETINE [Concomitant]
     Indication: DEPRESSION
     Dosage: 25 MG, QID
     Route: 048
     Dates: start: 20130916

REACTIONS (7)
  - Uveitis [Recovered/Resolved]
  - Vision blurred [Recovered/Resolved]
  - Visual acuity reduced [Recovered/Resolved]
  - Vitritis [Recovered/Resolved]
  - Eye inflammation [Recovered/Resolved]
  - Macular oedema [Recovered/Resolved]
  - Antinuclear antibody positive [Unknown]
